FAERS Safety Report 24238477 (Version 1)
Quarter: 2024Q3

REPORT INFORMATION
  Report Type: Spontaneous
  Country: CA (occurrence: CA)
  Receive Date: 20240822
  Receipt Date: 20240822
  Transmission Date: 20241017
  Serious: Yes (Other)
  Sender: SANDOZ
  Company Number: CA-SANDOZ-SDZ2024CA073107

PATIENT
  Sex: Male

DRUGS (2)
  1. HYRIMOZ [Suspect]
     Active Substance: ADALIMUMAB-ADAZ
     Dosage: 20 MG EVERY OTHER WEEK;BIWEEKLY HYRIMOZ 40 MG / 0.8 ML
     Route: 058
  2. HYRIMOZ [Suspect]
     Active Substance: ADALIMUMAB-ADAZ
     Indication: Crohn^s disease
     Dosage: 40 MG, Q2W, -HYRIMOZ 40 MG / 0.8 ML
     Route: 058
     Dates: start: 20220730

REACTIONS (3)
  - Drug level increased [Recovering/Resolving]
  - Off label use [Unknown]
  - Product dose omission issue [Unknown]
